FAERS Safety Report 15547031 (Version 1)
Quarter: 2018Q4

REPORT INFORMATION
  Report Type: Spontaneous
  Country: IT (occurrence: IT)
  Receive Date: 20181024
  Receipt Date: 20181024
  Transmission Date: 20190205
  Serious: Yes (Other)
  Sender: FDA-Public Use
  Company Number: IT-SA-2018SA291090

PATIENT
  Age: 60 Year
  Sex: Female
  Weight: 65 kg

DRUGS (8)
  1. LEVOLEUCOVORIN [LEVOFOLINIC ACID] [Concomitant]
     Indication: ADENOCARCINOMA GASTRIC
     Dosage: 265 MG, QCY
     Route: 042
     Dates: start: 20180716, end: 20180716
  2. OXALIPLATIN. [Suspect]
     Active Substance: OXALIPLATIN
     Dosage: 110 MG, QCY
     Route: 042
     Dates: start: 20180827, end: 20180827
  3. LEVOLEUCOVORIN [LEVOFOLINIC ACID] [Concomitant]
     Dosage: 265 MG, QCY
     Route: 042
     Dates: start: 20180827, end: 20180827
  4. OXALIPLATIN. [Suspect]
     Active Substance: OXALIPLATIN
     Indication: ADENOCARCINOMA GASTRIC
     Dosage: 110 MG, QCY
     Route: 042
     Dates: start: 20180716, end: 20180716
  5. FLUOROURACIL. [Suspect]
     Active Substance: FLUOROURACIL
     Indication: ADENOCARCINOMA GASTRIC
     Dosage: 3200 MG, QCY
     Route: 042
     Dates: start: 20180716, end: 20180716
  6. FLUOROURACIL. [Suspect]
     Active Substance: FLUOROURACIL
     Dosage: 530 MG, QCY
     Route: 040
     Dates: start: 20180716, end: 20180716
  7. FLUOROURACIL. [Suspect]
     Active Substance: FLUOROURACIL
     Dosage: 530 MG, QCY
     Route: 040
     Dates: start: 20180827, end: 20180827
  8. FLUOROURACIL. [Suspect]
     Active Substance: FLUOROURACIL
     Dosage: 3200 MG, QCY
     Route: 042
     Dates: start: 20180827, end: 20180827

REACTIONS (2)
  - Febrile neutropenia [Recovering/Resolving]
  - Anaemia [Recovering/Resolving]

NARRATIVE: CASE EVENT DATE: 20180907
